FAERS Safety Report 8061180-2 (Version None)
Quarter: 2012Q1

REPORT INFORMATION
  Report Type: 
  Country: None (occurrence: None)
  Receive Date: 20120120
  Receipt Date: 20110620
  Transmission Date: 20120608
  Serious: No
  Sender: FDA-Public Use
  Company Number: US-ALLERGAN-1108330US

PATIENT
  Age: 84 Year
  Sex: Male

DRUGS (3)
  1. RESTASIS [Suspect]
     Indication: DRY EYE
     Dosage: 1 GTT, BID
     Route: 047
     Dates: start: 20110610
  2. LATANOPROST [Concomitant]
     Dosage: UNK
     Route: 047
  3. COSOPT [Concomitant]
     Dosage: UNK
     Route: 047

REACTIONS (1)
  - EYE IRRITATION [None]
